FAERS Safety Report 9164816 (Version 1)
Quarter: 2013Q1

REPORT INFORMATION
  Report Type: Spontaneous
  Country: US (occurrence: None)
  Receive Date: 20130226
  Receipt Date: 20130226
  Transmission Date: 20140127
  Serious: Yes (Hospitalization)
  Sender: FDA-Public Use
  Company Number: 1603733

PATIENT
  Age: 5 Year
  Sex: Female

DRUGS (4)
  1. CEFTRIAXONE SODIUM [Suspect]
     Indication: PHARYNGITIS STREPTOCOCCAL
  2. PHENOBARBITAL [Suspect]
     Indication: CONVULSION
  3. CEFDINIR [Suspect]
     Indication: PHARYNGITIS STREPTOCOCCAL
  4. AMOXICILLIN [Suspect]
     Indication: PHARYNGITIS STREPTOCOCCAL

REACTIONS (9)
  - Drug reaction with eosinophilia and systemic symptoms [None]
  - Kawasaki^s disease [None]
  - Hypotension [None]
  - Tachycardia [None]
  - Convulsion [None]
  - Blood culture positive [None]
  - Staphylococcal infection [None]
  - Anaemia [None]
  - Thrombocytopenia [None]
